FAERS Safety Report 5244620-3 (Version None)
Quarter: 2007Q1

REPORT INFORMATION
  Report Type: 
  Country: None (occurrence: None)
  Receive Date: 20070222
  Receipt Date: 20070209
  Transmission Date: 20070707
  Serious: Yes (Hospitalization)
  Sender: FDA-Public Use
  Company Number: JP-SHR-JP-2005-013940

PATIENT
  Age: 39 Year
  Sex: Male

DRUGS (6)
  1. BETASERON [Suspect]
     Indication: RELAPSING-REMITTING MULTIPLE SCLEROSIS
     Dosage: 8 MIU, EVERY 2D
     Route: 058
     Dates: start: 20020905, end: 20030216
  2. SOLU-CORTEF [Concomitant]
     Indication: RELAPSING-REMITTING MULTIPLE SCLEROSIS
     Dosage: 1000 MG, 1X/DAY
     Route: 042
     Dates: start: 20021126, end: 20021128
  3. PREDONINE [Concomitant]
     Indication: RELAPSING-REMITTING MULTIPLE SCLEROSIS
     Dosage: 60 MG, 1X/DAY
     Route: 048
     Dates: start: 20021129, end: 20021130
  4. PREDONINE [Concomitant]
     Dosage: 40 MG, 1X/DAY
     Route: 048
     Dates: start: 20021201, end: 20021202
  5. PREDONINE [Concomitant]
     Dosage: 20 MG, 1X/DAY
     Route: 048
     Dates: start: 20021203, end: 20021204
  6. PREDONINE [Concomitant]
     Dosage: 10 MG, 1X/DAY
     Route: 048
     Dates: start: 20021205, end: 20021206

REACTIONS (2)
  - ARTHRALGIA [None]
  - PYREXIA [None]
